FAERS Safety Report 19316943 (Version 1)
Quarter: 2021Q2

REPORT INFORMATION
  Report Type: Spontaneous
  Country: AE (occurrence: AE)
  Receive Date: 20210527
  Receipt Date: 20210527
  Transmission Date: 20210717
  Serious: Yes (Hospitalization)
  Sender: FDA-Public Use
  Company Number: AE-ASTRAZENECA-2021A467286

PATIENT
  Age: 65 Year
  Sex: Female

DRUGS (7)
  1. PREDNISOLONE. [Concomitant]
     Active Substance: PREDNISOLONE
  2. CYCLOSPORINE. [Concomitant]
     Active Substance: CYCLOSPORINE
  3. DAPAGLIFLOZIN. [Suspect]
     Active Substance: DAPAGLIFLOZIN
     Dosage: 10.0MG UNKNOWN
     Route: 048
  4. INSULIN GLARGINE [Concomitant]
     Active Substance: INSULIN GLARGINE
  5. CETUXIMAB. [Concomitant]
     Active Substance: CETUXIMAB
     Dosage: 20.0MG UNKNOWN
  6. PANTOPRAZOLE [Concomitant]
     Active Substance: PANTOPRAZOLE
     Dosage: 40.0MG UNKNOWN
  7. ATORVASTATIN [Concomitant]
     Active Substance: ATORVASTATIN
     Dosage: 20.0MG UNKNOWN

REACTIONS (1)
  - Euglycaemic diabetic ketoacidosis [Recovering/Resolving]
